FAERS Safety Report 8987361 (Version 1)
Quarter: 2012Q4

REPORT INFORMATION
  Report Type: 
  Country: JP (occurrence: JP)
  Receive Date: 20121226
  Receipt Date: 20121226
  Transmission Date: 20130627
  Serious: Yes (Other)
  Sender: FDA-Public Use
  Company Number: JP-ROCHE-1170827

PATIENT
  Age: 17 Year
  Sex: Male

DRUGS (4)
  1. CELLCEPT [Suspect]
     Indication: PROPHYLAXIS AGAINST TRANSPLANT REJECTION
     Dosage: Dosage is uncertain.
     Route: 048
  2. RITUXAN [Suspect]
     Indication: POST TRANSPLANT LYMPHOPROLIFERATIVE DISORDER
     Dosage: Dosage is uncertain.
     Route: 041
  3. TACROLIMUS HYDRATE [Concomitant]
     Indication: PROPHYLAXIS AGAINST TRANSPLANT REJECTION
     Dosage: Dosage is uncertain.
     Route: 065
  4. PREDNISOLONE [Concomitant]
     Indication: PROPHYLAXIS AGAINST TRANSPLANT REJECTION
     Dosage: Dosage is uncertain.
     Route: 065

REACTIONS (3)
  - Duodenal ulcer [Unknown]
  - Lymphoproliferative disorder [Unknown]
  - Intestinal perforation [Unknown]
